FAERS Safety Report 18627756 (Version 1)
Quarter: 2020Q4

REPORT INFORMATION
  Report Type: Spontaneous
  Country: US (occurrence: US)
  Receive Date: 20201216
  Receipt Date: 20201216
  Transmission Date: 20210114
  Serious: Yes (Disabling)
  Sender: FDA-Public Use
  Company Number: None

PATIENT
  Age: 58 Year
  Sex: Female
  Weight: 76.5 kg

DRUGS (5)
  1. DUPIXENT [Suspect]
     Active Substance: DUPILUMAB
     Indication: NASAL POLYPS
     Dosage: ?          QUANTITY:1 INJECTION(S);??
     Route: 058
     Dates: start: 20200424
  2. METHIMAZOLE. [Concomitant]
     Active Substance: METHIMAZOLE
  3. PROBIOTIC [Concomitant]
     Active Substance: PROBIOTICS NOS
  4. VITAMIN D [Concomitant]
     Active Substance: VITAMIN D NOS
  5. CENTRUM VITAMIN [Concomitant]

REACTIONS (5)
  - Arthralgia [None]
  - Pain [None]
  - Gait disturbance [None]
  - Eosinophil count increased [None]
  - Pain in extremity [None]

NARRATIVE: CASE EVENT DATE: 20201104
